FAERS Safety Report 8216914-0 (Version None)
Quarter: 2012Q1

REPORT INFORMATION
  Report Type: 
  Country: None (occurrence: None)
  Receive Date: 20120318
  Receipt Date: 20120312
  Transmission Date: 20120608
  Serious: Yes (Other)
  Sender: FDA-Public Use
  Company Number: BR-ROCHE-1048778

PATIENT
  Sex: Female
  Weight: 80 kg

DRUGS (1)
  1. ISOTRETINOIN [Suspect]
     Indication: ACNE

REACTIONS (4)
  - HAEMORRHAGE [None]
  - URINARY TRACT INFECTION [None]
  - ABDOMINAL PAIN [None]
  - HERNIA [None]
